FAERS Safety Report 4330164-X (Version None)
Quarter: 2004Q2

REPORT INFORMATION
  Report Type: 
  Country: None (occurrence: None)
  Receive Date: 20040401
  Receipt Date: 20040329
  Transmission Date: 20050107
  Serious: No
  Sender: FDA-Public Use
  Company Number: 7688

PATIENT
  Age: 22 Year
  Sex: Male

DRUGS (6)
  1. EPHEDRINE [Suspect]
     Dosage: 200 MG ONCE IV
     Route: 042
  2. PENTOBARBITAL CAP [Concomitant]
  3. DIAZEPAM [Concomitant]
  4. PROPOFOL [Concomitant]
  5. FENTANYL [Concomitant]
  6. VECURONIUM BROMIDE [Concomitant]

REACTIONS (5)
  - ACCIDENTAL OVERDOSE [None]
  - BLOOD PRESSURE INCREASED [None]
  - HEART RATE INCREASED [None]
  - HYPERTENSION [None]
  - MEDICATION ERROR [None]
